FAERS Safety Report 17521298 (Version 1)
Quarter: 2020Q1

REPORT INFORMATION
  Report Type: Spontaneous
  Country: US (occurrence: US)
  Receive Date: 20200310
  Receipt Date: 20200310
  Transmission Date: 20200409
  Serious: No
  Sender: FDA-Public Use
  Company Number: US-PFIZER INC-2020102919

PATIENT
  Age: 47 Year
  Sex: Male
  Weight: 136.8 kg

DRUGS (1)
  1. ADVIL LIQUI-GELS [Suspect]
     Active Substance: IBUPROFEN
     Indication: MYALGIA
     Dosage: UNK [TOOK 3 IN THE MORNING AROUND 3]

REACTIONS (3)
  - Balance disorder [Unknown]
  - Intentional product misuse [Unknown]
  - Dizziness [Unknown]
